FAERS Safety Report 4562470-8 (Version None)
Quarter: 2005Q1

REPORT INFORMATION
  Report Type: 
  Country: None (occurrence: None)
  Receive Date: 20050126
  Receipt Date: 20050110
  Transmission Date: 20050727
  Serious: Yes (Hospitalization)
  Sender: FDA-Public Use
  Company Number: DL200504

PATIENT
  Age: 19 Year
  Sex: Female
  Weight: 41.7309 kg

DRUGS (2)
  1. MIFEPRISTONE TABELTS 200 MG (DANCO LABS) [Suspect]
     Indication: ABORTION INDUCED
     Dosage: 200 MG ORAL
     Route: 048
     Dates: start: 20041203
  2. MISOPROSTOL [Suspect]
     Dosage: 800 MCG VAGINAL
     Dates: start: 20041206

REACTIONS (25)
  - ADHESION [None]
  - ANAEMIA [None]
  - ANOREXIA [None]
  - APPENDICITIS [None]
  - BETA HAEMOLYTIC STREPTOCOCCAL INFECTION [None]
  - BLOOD CANNABINOIDS [None]
  - COMPUTERISED TOMOGRAM ABDOMEN ABNORMAL [None]
  - DIARRHOEA HAEMORRHAGIC [None]
  - DRUG EXPOSURE DURING PREGNANCY [None]
  - FALLOPIAN TUBE DISORDER [None]
  - GONORRHOEA [None]
  - INFLAMMATION [None]
  - INTRA-ABDOMINAL HAEMORRHAGE [None]
  - JOINT SWELLING [None]
  - LIVER DISORDER [None]
  - PELVIC INFLAMMATORY DISEASE [None]
  - PERITONITIS [None]
  - POST PROCEDURAL COMPLICATION [None]
  - RASH MACULAR [None]
  - RETAINED PRODUCTS OF CONCEPTION [None]
  - SKIN ULCER [None]
  - STREPTOCOCCAL SEPSIS [None]
  - TOXIC SHOCK SYNDROME [None]
  - TREATMENT NONCOMPLIANCE [None]
  - WEIGHT DECREASED [None]
